FAERS Safety Report 9094134 (Version 1)
Quarter: 2013Q1

REPORT INFORMATION
  Report Type: Spontaneous
  Country: US (occurrence: None)
  Receive Date: 20130122
  Receipt Date: 20130122
  Transmission Date: 20140127
  Serious: Yes (Other)
  Sender: FDA-Public Use
  Company Number: JPI-P-028988

PATIENT
  Age: 75 Year
  Sex: Female
  Weight: 90.72 kg

DRUGS (9)
  1. XYREM  (500 MILLIGRAM/MILLILITERS, SOLUTION)(SODIUM OXYBATE) [Suspect]
     Indication: SLEEP DISORDER
     Route: 048
     Dates: start: 201210
  2. XYREM  (500 MILLIGRAM/MILLILITERS, SOLUTION)(SODIUM OXYBATE) [Suspect]
     Indication: SOMNOLENCE
     Route: 048
     Dates: start: 201210
  3. AZITHROMYCIN [Concomitant]
  4. ETHAMBUTOL [Concomitant]
  5. RAMIPRIL [Concomitant]
  6. FUROSEMIDE [Concomitant]
  7. OMEPRAZOLE [Concomitant]
  8. PRAMIPEXOLE [Concomitant]
  9. SOTALOL [Concomitant]

REACTIONS (2)
  - Atrial fibrillation [None]
  - Disease recurrence [None]
